FAERS Safety Report 19898174 (Version 1)
Quarter: 2021Q3

REPORT INFORMATION
  Report Type: Report from Study
  Country: US (occurrence: US)
  Receive Date: 20210930
  Receipt Date: 20210930
  Transmission Date: 20211014
  Serious: Yes (Hospitalization)
  Sender: FDA-Public Use
  Company Number: US-SA-2021SA247864

PATIENT
  Age: 68 Year
  Sex: Female

DRUGS (2)
  1. DUPILUMAB [Suspect]
     Active Substance: DUPILUMAB
     Dosage: 300 MG, QOW
     Route: 058
     Dates: start: 2021
  2. DUPILUMAB [Suspect]
     Active Substance: DUPILUMAB
     Indication: ASTHMA
     Dosage: 600 MG, 1X
     Route: 058
     Dates: start: 20210718, end: 20210718

REACTIONS (9)
  - Back pain [Not Recovered/Not Resolved]
  - Fall [Unknown]
  - Product dose omission in error [Unknown]
  - Fall [Not Recovered/Not Resolved]
  - Gait disturbance [Unknown]
  - Contusion [Unknown]
  - Spinal operation [Not Recovered/Not Resolved]
  - Injury [Unknown]
  - Product use issue [Unknown]

NARRATIVE: CASE EVENT DATE: 20210718
